FAERS Safety Report 10953486 (Version 1)
Quarter: 2015Q1

REPORT INFORMATION
  Report Type: Spontaneous
  Country: US (occurrence: US)
  Receive Date: 20150325
  Receipt Date: 20150325
  Transmission Date: 20150721
  Serious: No
  Sender: FDA-Public Use
  Company Number: US-PFIZER INC-2015102525

PATIENT
  Age: 76 Year
  Sex: Female
  Weight: 82 kg

DRUGS (8)
  1. VFEND [Suspect]
     Active Substance: VORICONAZOLE
     Indication: EYE INFECTION FUNGAL
     Dosage: 200 MG, 2X/DAY
     Dates: start: 2014
  2. LEVOTHYROXINE [Concomitant]
     Active Substance: LEVOTHYROXINE
     Indication: THYROID DISORDER
     Dosage: 75 ?G, 1X/DAY
     Route: 048
  3. PANTOPRAZOLE [Concomitant]
     Active Substance: PANTOPRAZOLE SODIUM
     Dosage: 40 MG, 1X/DAY
     Route: 048
  4. PREDNISONE. [Concomitant]
     Active Substance: PREDNISONE
     Dosage: 20 MG, 1X/DAY
     Dates: start: 2014
  5. LOVASTATIN. [Concomitant]
     Active Substance: LOVASTATIN
     Indication: BLOOD CHOLESTEROL INCREASED
     Dosage: 20 MG, 1X/DAY AT NIGHT
     Route: 048
  6. METFORMIN [Concomitant]
     Active Substance: METFORMIN HYDROCHLORIDE
     Indication: BLOOD GLUCOSE INCREASED
     Dosage: 500 MG, 1X/DAY
     Route: 048
  7. TRIAMTERENE AND HYDROCHLOROTHIZIDE [Concomitant]
     Active Substance: HYDROCHLOROTHIAZIDE\TRIAMTERENE
     Indication: SWELLING
     Dosage: 31.5/25, 2 DF, DAILY
  8. GABAPENTIN. [Concomitant]
     Active Substance: GABAPENTIN
     Dosage: 200 MG, AS NEEDED, TAKEN AT NIGHT USUALLY
     Route: 048

REACTIONS (4)
  - Cough [Recovering/Resolving]
  - Asthenia [Not Recovered/Not Resolved]
  - Urinary incontinence [Not Recovered/Not Resolved]
  - Sinus congestion [Recovering/Resolving]

NARRATIVE: CASE EVENT DATE: 201501
